FAERS Safety Report 8499385-9 (Version None)
Quarter: 2012Q3

REPORT INFORMATION
  Report Type: 
  Country: None (occurrence: None)
  Receive Date: 20120710
  Receipt Date: 20120704
  Transmission Date: 20120928
  Serious: Yes (Other)
  Sender: FDA-Public Use
  Company Number: PHHO2011DE021518

PATIENT
  Age: 72 Year
  Sex: Female
  Weight: 58 kg

DRUGS (3)
  1. ANASTROZOLE [Concomitant]
     Indication: BREAST CANCER
     Dosage: 1 MG, QD
     Route: 048
     Dates: start: 20090115
  2. ZOLEDRONOC ACID [Suspect]
     Indication: BREAST CANCER
     Dosage: 4 MG,EVERY 4 WEEKS
     Route: 042
     Dates: start: 20070108, end: 20110322
  3. METOPROLOL [Concomitant]
     Dosage: 95 MG, QD
     Dates: start: 20061228

REACTIONS (1)
  - TOOTH LOSS [None]
